FAERS Safety Report 8736882 (Version 3)
Quarter: 2012Q4

REPORT INFORMATION
  Report Type: 
  Country: JP (occurrence: JP)
  Receive Date: 20120822
  Receipt Date: 20121108
  Transmission Date: 20130627
  Serious: Yes (Disabling)
  Sender: FDA-Public Use
  Company Number: JP-ABBOTT-12P-087-0971251-00

PATIENT
  Sex: Female

DRUGS (1)
  1. LEUPLIN FOR INJECTION KIT1.88 MG [Suspect]
     Indication: ADENOMYOSIS
     Route: 058
     Dates: start: 201109, end: 201112

REACTIONS (3)
  - Bone marrow oedema syndrome [Not Recovered/Not Resolved]
  - Arthralgia [Not Recovered/Not Resolved]
  - Musculoskeletal chest pain [Recovering/Resolving]
